FAERS Safety Report 18663916 (Version 1)
Quarter: 2020Q4

REPORT INFORMATION
  Report Type: Report from Study
  Country: None (occurrence: US)
  Receive Date: 20201224
  Receipt Date: 20201224
  Transmission Date: 20210114
  Serious: Yes (Other)
  Sender: FDA-Public Use
  Company Number: US-ABBVIE-20K-163-3328198-00

PATIENT
  Sex: Female

DRUGS (3)
  1. CITALOPRAM [Concomitant]
     Active Substance: CITALOPRAM HYDROBROMIDE
     Indication: PRODUCT USED FOR UNKNOWN INDICATION
  2. QUETIAPINE. [Concomitant]
     Active Substance: QUETIAPINE
     Indication: PRODUCT USED FOR UNKNOWN INDICATION
  3. HUMIRA [Suspect]
     Active Substance: ADALIMUMAB
     Indication: RHEUMATOID ARTHRITIS
     Route: 058
     Dates: start: 20200316

REACTIONS (22)
  - Impaired self-care [Recovered/Resolved]
  - Gait disturbance [Recovering/Resolving]
  - Joint swelling [Unknown]
  - Anxiety [Recovering/Resolving]
  - Peripheral swelling [Recovering/Resolving]
  - Rash [Unknown]
  - Swelling [Recovering/Resolving]
  - Back injury [Recovering/Resolving]
  - Hyperhidrosis [Not Recovered/Not Resolved]
  - Joint stiffness [Unknown]
  - Back pain [Recovering/Resolving]
  - Retinal haemorrhage [Unknown]
  - Pain in extremity [Recovering/Resolving]
  - Pain [Recovering/Resolving]
  - Diabetic retinopathy [Unknown]
  - Loss of personal independence in daily activities [Recovering/Resolving]
  - Depression [Recovering/Resolving]
  - Insomnia [Unknown]
  - Arthralgia [Unknown]
  - Malaise [Unknown]
  - Musculoskeletal stiffness [Recovering/Resolving]
  - Neck pain [Recovering/Resolving]

NARRATIVE: CASE EVENT DATE: 2020
